FAERS Safety Report 20196040 (Version 2)
Quarter: 2022Q1

REPORT INFORMATION
  Report Type: Spontaneous
  Country: PT (occurrence: PT)
  Receive Date: 20211216
  Receipt Date: 20220119
  Transmission Date: 20220423
  Serious: Yes (Hospitalization)
  Sender: FDA-Public Use
  Company Number: None

PATIENT
  Age: 47 Year
  Sex: Male
  Weight: 91 kg

DRUGS (2)
  1. BETAFERON [Suspect]
     Active Substance: INTERFERON BETA-1B
     Indication: Multiple sclerosis
     Dosage: 750 ?G, OW, 250 MICROGRAMS EVERY OTHER DAY (MONDAY, WEDNESDAY, FRIDAY)
     Route: 058
     Dates: start: 20170101
  2. BETAFERON [Suspect]
     Active Substance: INTERFERON BETA-1B
     Indication: Multiple sclerosis
     Dosage: 750 ?G, OW, 250 MICROGRAMS EVERY OTHER DAY (MONDAY, WEDNESDAY, FRIDAY)
     Route: 058
     Dates: start: 20211110, end: 20211110

REACTIONS (1)
  - Thrombocytopenic purpura [Recovering/Resolving]

NARRATIVE: CASE EVENT DATE: 20211110
